FAERS Safety Report 12412012 (Version 1)
Quarter: 2016Q2

REPORT INFORMATION
  Report Type: Report from Study
  Country: US (occurrence: US)
  Receive Date: 20160527
  Receipt Date: 20160527
  Transmission Date: 20160815
  Serious: Yes (Hospitalization, Other)
  Sender: FDA-Public Use
  Company Number: US-JNJFOC-20160523908

PATIENT
  Age: 59 Year
  Sex: Male

DRUGS (11)
  1. CRESTOR [Concomitant]
     Active Substance: ROSUVASTATIN CALCIUM
  2. ALBUTEROL. [Concomitant]
     Active Substance: ALBUTEROL
     Route: 050
  3. FUROSEMIDE. [Concomitant]
     Active Substance: FUROSEMIDE
  4. CLONAZEPAM. [Concomitant]
     Active Substance: CLONAZEPAM
  5. OXYCODONE [Concomitant]
     Active Substance: OXYCODONE
  6. IMBRUVICA [Suspect]
     Active Substance: IBRUTINIB
     Indication: MANTLE CELL LYMPHOMA
     Route: 048
     Dates: start: 20160518
  7. ASPIRIN. [Concomitant]
     Active Substance: ASPIRIN
  8. HYDROCODONE BITARTRATE W/PARACETAMOL [Concomitant]
     Active Substance: ACETAMINOPHEN\HYDROCODONE BITARTRATE
  9. ACYCLOVIR. [Concomitant]
     Active Substance: ACYCLOVIR
  10. LOSARTAN. [Concomitant]
     Active Substance: LOSARTAN
  11. KLOR-CON [Concomitant]
     Active Substance: POTASSIUM CHLORIDE

REACTIONS (3)
  - Pleural effusion [Not Recovered/Not Resolved]
  - Pneumonia [Not Recovered/Not Resolved]
  - Atrial fibrillation [Unknown]

NARRATIVE: CASE EVENT DATE: 2016
